FAERS Safety Report 11336584 (Version 1)
Quarter: 2015Q3

REPORT INFORMATION
  Report Type: Spontaneous
  Country: GR (occurrence: GR)
  Receive Date: 20150804
  Receipt Date: 20150804
  Transmission Date: 20151125
  Serious: Yes (Other)
  Sender: FDA-Public Use
  Company Number: GR-ELI_LILLY_AND_COMPANY-GR201507009348

PATIENT
  Age: 15 Year
  Sex: Female

DRUGS (2)
  1. LADOSE [Suspect]
     Active Substance: FLUOXETINE HYDROCHLORIDE
     Indication: PRODUCT USED FOR UNKNOWN INDICATION
     Dosage: 10 MG, QD
     Route: 065
     Dates: start: 20150624
  2. LADOSE [Suspect]
     Active Substance: FLUOXETINE HYDROCHLORIDE
     Dosage: 20 MG, QD
     Route: 065
     Dates: start: 20150706

REACTIONS (7)
  - Oesophageal pain [Unknown]
  - Syncope [Unknown]
  - Headache [Unknown]
  - Pulse abnormal [Unknown]
  - Tachycardia [Unknown]
  - Chest pain [Unknown]
  - Orthostatic hypotension [Unknown]

NARRATIVE: CASE EVENT DATE: 20150717
